FAERS Safety Report 5394029-7 (Version None)
Quarter: 2007Q3

REPORT INFORMATION
  Report Type: 
  Country: None (occurrence: None)
  Receive Date: 20070723
  Receipt Date: 20070129
  Transmission Date: 20080115
  Serious: No
  Sender: FDA-Public Use
  Company Number: A0637384A

PATIENT
  Age: 77 Year
  Sex: Male
  Weight: 71.8 kg

DRUGS (6)
  1. AVANDIA [Suspect]
     Dosage: 2MG PER DAY
     Route: 048
     Dates: start: 20061201
  2. VIAGRA [Concomitant]
     Indication: ERECTILE DYSFUNCTION
     Route: 048
     Dates: start: 20040301
  3. NIACIN [Concomitant]
     Indication: LIPIDS INCREASED
     Route: 048
     Dates: start: 20040301
  4. METOPROLOL TARTRATE [Concomitant]
     Dosage: 25MG TWICE PER DAY
     Route: 048
     Dates: start: 20040301
  5. LIPITOR [Concomitant]
     Indication: LIPIDS INCREASED
     Dosage: 10MG AT NIGHT
     Route: 048
     Dates: start: 20040301
  6. ASPIRIN [Concomitant]
     Indication: CORONARY ARTERY DISEASE
     Dosage: 325MG PER DAY
     Route: 048
     Dates: start: 20040301

REACTIONS (1)
  - ERECTILE DYSFUNCTION [None]
